FAERS Safety Report 9543249 (Version 2)
Quarter: 2013Q4

REPORT INFORMATION
  Report Type: Spontaneous
  Country: JP (occurrence: JP)
  Receive Date: 20130923
  Receipt Date: 20131016
  Transmission Date: 20140711
  Serious: Yes (Other)
  Sender: FDA-Public Use
  Company Number: JP-US-EMD SERONO, INC.-7236953

PATIENT
  Age: 33 Year
  Sex: Female

DRUGS (1)
  1. SEROPHENE [Suspect]
     Indication: OVULATION INDUCTION
     Route: 048

REACTIONS (1)
  - Ectopic pregnancy [Recovered/Resolved]
